FAERS Safety Report 7129238-X (Version None)
Quarter: 2010Q4

REPORT INFORMATION
  Report Type: 
  Country: None (occurrence: None)
  Receive Date: 20101130
  Receipt Date: 20101129
  Transmission Date: 20110411
  Serious: Yes (Hospitalization)
  Sender: FDA-Public Use
  Company Number: JP-AMGEN-JPNCT2010006697

PATIENT

DRUGS (11)
  1. PANITUMUMAB [Suspect]
     Indication: COLORECTAL CANCER
     Dosage: 6 MG/KG, Q2WK
     Route: 041
     Dates: start: 20100825, end: 20100915
  2. LOXOPROFEN [Suspect]
     Dosage: UNK UNK, UNK
     Route: 048
  3. ANTIHISTAMINES [Concomitant]
     Indication: PROPHYLAXIS
     Dosage: UNK
     Route: 065
  4. CORTICOSTEROIDS [Concomitant]
     Indication: PROPHYLAXIS
     Dosage: UNK
     Route: 065
  5. IRINOTECAN HYDROCHLORIDE [Concomitant]
     Indication: COLORECTAL CANCER
     Route: 041
     Dates: start: 20100825, end: 20100827
  6. FLUOROURACIL [Concomitant]
     Indication: COLORECTAL CANCER
     Route: 040
     Dates: start: 20100825, end: 20100827
  7. FLUOROURACIL [Concomitant]
     Route: 041
     Dates: start: 20100825, end: 20100827
  8. CALCIUM LEVOFOLINATE [Concomitant]
     Indication: COLORECTAL CANCER
     Route: 041
     Dates: start: 20100825, end: 20100827
  9. AZUNOL GARGLE LIQUID [Concomitant]
     Route: 048
  10. ASPARA-CA [Concomitant]
     Route: 048
  11. ZOMETA [Concomitant]
     Indication: METASTASES TO BONE
     Route: 041

REACTIONS (1)
  - GASTRIC ULCER HAEMORRHAGE [None]
